FAERS Safety Report 13377645 (Version 1)
Quarter: 2017Q1

REPORT INFORMATION
  Report Type: Spontaneous
  Country: US (occurrence: US)
  Receive Date: 20170328
  Receipt Date: 20170328
  Transmission Date: 20170429
  Serious: Yes (Other)
  Sender: FDA-Public Use
  Company Number: US-MALLINCKRODT-T201701083

PATIENT
  Sex: Male
  Weight: 81 kg

DRUGS (3)
  1. H.P. ACTHAR [Suspect]
     Active Substance: CORTICOTROPIN
     Indication: ANKYLOSING SPONDYLITIS
     Dosage: 80 UNITS/ML, TWICE PER WEEK
     Route: 058
     Dates: start: 20161121
  2. REMICADE [Concomitant]
     Active Substance: INFLIXIMAB
  3. METHOTREXATE. [Concomitant]
     Active Substance: METHOTREXATE

REACTIONS (9)
  - Proteinuria [Unknown]
  - Delusion [Recovering/Resolving]
  - Arthralgia [Unknown]
  - Neurological symptom [Recovering/Resolving]
  - Hallucination [Recovering/Resolving]
  - Red blood cell count decreased [Unknown]
  - Confusional state [Recovering/Resolving]
  - Paranoia [Recovering/Resolving]
  - Lymphocyte count decreased [Unknown]
